FAERS Safety Report 6731899-1 (Version None)
Quarter: 2010Q2

REPORT INFORMATION
  Report Type: 
  Country: None (occurrence: None)
  Receive Date: 20100517
  Receipt Date: 20100505
  Transmission Date: 20101027
  Serious: Yes (Hospitalization)
  Sender: FDA-Public Use
  Company Number: LEO-2010-00389

PATIENT
  Age: 33 Year
  Weight: 71 kg

DRUGS (1)
  1. INNOHEP [Suspect]
     Indication: DEEP VEIN THROMBOSIS
     Dosage: 14000 IU (14000 IU, 1IN 1 D)
     Dates: start: 20070110, end: 20070924

REACTIONS (5)
  - CAESAREAN SECTION [None]
  - DRUG EXPOSURE DURING PREGNANCY [None]
  - INTRAPARTUM HAEMORRHAGE [None]
  - POSTPARTUM HAEMORRHAGE [None]
  - UTERINE ATONY [None]
